FAERS Safety Report 14009809 (Version 1)
Quarter: 2017Q3

REPORT INFORMATION
  Report Type: Spontaneous
  Country: BR (occurrence: BR)
  Receive Date: 20170925
  Receipt Date: 20170925
  Transmission Date: 20171128
  Serious: Yes (Other)
  Sender: FDA-Public Use
  Company Number: BR-009507513-1709BRA011357

PATIENT
  Age: 30 Year
  Sex: Female
  Weight: 53 kg

DRUGS (4)
  1. NUVARING [Suspect]
     Active Substance: ETHINYL ESTRADIOL\ETONOGESTREL
     Indication: CONTRACEPTION
     Dosage: 3 WEEKS WITH THE VAGINAL RING AND 1 WEEK FOR FREE CONTRACEPTIVE INTERVAL)
     Route: 067
     Dates: start: 201610, end: 201707
  2. NUVARING [Suspect]
     Active Substance: ETHINYL ESTRADIOL\ETONOGESTREL
     Dosage: 1 DF, QM
     Route: 067
     Dates: start: 201610, end: 201707
  3. PURAN [Concomitant]
     Active Substance: LEVOTHYROXINE SODIUM
     Indication: HYPOTHYROIDISM
     Dosage: 50 MICROGRAM, UNK
     Dates: start: 201608
  4. PONDERA [Concomitant]
     Active Substance: PAROXETINE HYDROCHLORIDE
     Indication: ANXIETY
     Dosage: 15 MG, QD
     Route: 048
     Dates: start: 2012

REACTIONS (7)
  - Pregnancy with contraceptive device [Unknown]
  - Metrorrhagia [Recovered/Resolved]
  - Vitamin D deficiency [Unknown]
  - Product storage error [Unknown]
  - Abortion threatened [Unknown]
  - Unintended pregnancy [Unknown]
  - Abdominal pain [Recovered/Resolved]

NARRATIVE: CASE EVENT DATE: 20170501
